FAERS Safety Report 18108977 (Version 2)
Quarter: 2020Q3

REPORT INFORMATION
  Report Type: Spontaneous
  Country: US (occurrence: US)
  Receive Date: 20200804
  Receipt Date: 20200806
  Transmission Date: 20201103
  Serious: No
  Sender: FDA-Public Use
  Company Number: US-PFIZER INC-2020293423

PATIENT
  Sex: Male

DRUGS (4)
  1. ZOLOFT [Suspect]
     Active Substance: SERTRALINE HYDROCHLORIDE
     Dosage: 100 MG [1.5 TABLETS (100 MG TABLET) OF THE GENERIC IN ADDITION TO 1 TABLET (100MG) OF THE BRAND]
  2. PLAVIX [Concomitant]
     Active Substance: CLOPIDOGREL BISULFATE
     Indication: CORONARY ARTERY DISEASE
     Dosage: UNK
  3. SERTRALINE HCL [Suspect]
     Active Substance: SERTRALINE HYDROCHLORIDE
     Indication: DEPRESSION
     Dosage: 100 MG, DAILY
  4. SERTRALINE HCL [Suspect]
     Active Substance: SERTRALINE HYDROCHLORIDE
     Dosage: 150 MG [1.5 TABLETS (100 MG TABLET) OF THE GENERIC IN ADDITION TO 1 TABLET (100MG) OF THE BRAND]

REACTIONS (5)
  - Overdose [Unknown]
  - Nightmare [Unknown]
  - Nausea [Unknown]
  - Dysarthria [Unknown]
  - Fatigue [Unknown]
